FAERS Safety Report 24112927 (Version 1)
Quarter: 2024Q3

REPORT INFORMATION
  Report Type: Spontaneous
  Country: FR (occurrence: FR)
  Receive Date: 20240719
  Receipt Date: 20240719
  Transmission Date: 20241017
  Serious: Yes (Other)
  Sender: EISAI
  Company Number: None

PATIENT
  Age: 83 Year
  Sex: Female
  Weight: 62.4 kg

DRUGS (10)
  1. LENVATINIB [Suspect]
     Active Substance: LENVATINIB
     Indication: Endometrial cancer metastatic
     Dosage: 10MG /J
     Route: 048
     Dates: start: 20240124, end: 20240516
  2. LENVATINIB [Suspect]
     Active Substance: LENVATINIB
     Route: 048
     Dates: start: 20240620, end: 20240701
  3. PEMBROLIZUMAB [Suspect]
     Active Substance: PEMBROLIZUMAB
     Indication: Endometrial cancer metastatic
     Dosage: DOSE UNKNOWN
     Route: 042
     Dates: start: 20240124, end: 20240417
  4. PANTOPRAZOLE [Concomitant]
     Active Substance: PANTOPRAZOLE
     Indication: Product used for unknown indication
     Dosage: DOSE AND FREQUENCY UNKNOWN
  5. MIRTAZAPINE [Concomitant]
     Active Substance: MIRTAZAPINE
     Indication: Product used for unknown indication
     Dosage: DOSE AND FREQUENCY UNKNOWN
  6. LEVOTHYROXINE [Concomitant]
     Active Substance: LEVOTHYROXINE\LEVOTHYROXINE SODIUM
     Dosage: DOSE AND FREQUENCY UNKNOWN
  7. ACTONEL [Concomitant]
     Active Substance: RISEDRONATE SODIUM
     Indication: Product used for unknown indication
     Dosage: DOSE AND FREQUENCY UNKNOWN
  8. FUROSEMIDE [Concomitant]
     Active Substance: FUROSEMIDE
     Indication: Product used for unknown indication
     Dosage: DOSE AND FREQUENCY UNKNOWN
  9. LYRICA [Concomitant]
     Active Substance: PREGABALIN
     Dosage: DOSE AND FREQUENCY UNKNOWN
  10. FOLIC ACID [Concomitant]
     Active Substance: FOLIC ACID
     Indication: Product used for unknown indication
     Dosage: DOSE AND FREQUENCY UNKNOWN

REACTIONS (3)
  - Decreased appetite [Not Recovered/Not Resolved]
  - Fatigue [Not Recovered/Not Resolved]
  - Diarrhoea [Recovered/Resolved]

NARRATIVE: CASE EVENT DATE: 20240203
